FAERS Safety Report 19608848 (Version 1)
Quarter: 2021Q3

REPORT INFORMATION
  Report Type: Spontaneous
  Country: US (occurrence: US)
  Receive Date: 20210724
  Receipt Date: 20210724
  Transmission Date: 20211014
  Serious: Yes (Other)
  Sender: FDA-Public Use
  Company Number: None

PATIENT
  Age: 79 Year
  Sex: Female
  Weight: 54 kg

DRUGS (1)
  1. TRETINOIN CREME [Suspect]
     Active Substance: TRETINOIN
     Indication: ACTINIC KERATOSIS
     Route: 061
     Dates: start: 20210503

REACTIONS (1)
  - Hordeolum [None]

NARRATIVE: CASE EVENT DATE: 20210601
